FAERS Safety Report 4337183-8 (Version None)
Quarter: 2004Q2

REPORT INFORMATION
  Report Type: 
  Country: None (occurrence: None)
  Receive Date: 20040408
  Receipt Date: 20040405
  Transmission Date: 20050107
  Serious: Yes (Other)
  Sender: FDA-Public Use
  Company Number: THQ2004A00338

PATIENT
  Age: 67 Year
  Sex: Male

DRUGS (1)
  1. LANSOPRAZOLE [Suspect]
     Indication: GASTROOESOPHAGEAL REFLUX DISEASE
     Dosage: 30 MG (UNKNOWN) ORAL
     Route: 048
     Dates: start: 20030428, end: 20030430

REACTIONS (2)
  - BALANITIS [None]
  - PENIS DISORDER [None]
